FAERS Safety Report 25039571 (Version 1)
Quarter: 2025Q1

REPORT INFORMATION
  Report Type: Report from Study
  Country: KR (occurrence: KR)
  Receive Date: 20250305
  Receipt Date: 20250305
  Transmission Date: 20250409
  Serious: Yes (Hospitalization, Other)
  Sender: GALDERMA
  Company Number: KR-GALDERMA-KR2025002399

PATIENT

DRUGS (4)
  1. TRIFAROTENE [Suspect]
     Active Substance: TRIFAROTENE
     Indication: Acne
     Route: 061
     Dates: start: 20240701
  2. Telmione [Concomitant]
     Indication: Product used for unknown indication
     Route: 048
     Dates: start: 20181122
  3. ADALAT [Concomitant]
     Active Substance: NIFEDIPINE
     Indication: Product used for unknown indication
     Route: 048
     Dates: start: 20181122
  4. Semerwon [Concomitant]
     Indication: Product used for unknown indication
     Route: 048
     Dates: start: 20220314

REACTIONS (1)
  - Haematemesis [Recovered/Resolved]

NARRATIVE: CASE EVENT DATE: 20240919
